FAERS Safety Report 8190118-2 (Version None)
Quarter: 2012Q1

REPORT INFORMATION
  Report Type: 
  Country: None (occurrence: None)
  Receive Date: 20120307
  Receipt Date: 20120307
  Transmission Date: 20120608
  Serious: Yes (Other)
  Sender: FDA-Public Use
  Company Number: None

PATIENT
  Age: 29 Year
  Sex: Female
  Weight: 63.502 kg

DRUGS (1)
  1. LOESTRIN 24 FE [Suspect]
     Indication: CONTRACEPTION
     Dosage: 1 PILL
     Route: 048
     Dates: start: 20111215, end: 20120209

REACTIONS (6)
  - BREAST PAIN [None]
  - GAIT DISTURBANCE [None]
  - ANXIETY [None]
  - FEAR [None]
  - ARTHRALGIA [None]
  - BACK PAIN [None]
